FAERS Safety Report 7439972-X (Version None)
Quarter: 2011Q2

REPORT INFORMATION
  Report Type: 
  Country: None (occurrence: None)
  Receive Date: 20110427
  Receipt Date: 20091122
  Transmission Date: 20111010
  Serious: Yes (Other)
  Sender: FDA-Public Use
  Company Number: US-BAYER-200940277NA

PATIENT
  Age: 52 Year
  Sex: Male
  Weight: 111.11 kg

DRUGS (14)
  1. HEPARIN [Concomitant]
     Dosage: 33000 UNK, UNK
     Dates: start: 20031024, end: 20031024
  2. INSULIN [Concomitant]
     Dosage: 25 U, UNK
     Dates: start: 20031024
  3. LEVOPHED [Concomitant]
     Dosage: UNK
     Dates: start: 20031024
  4. AMIODARONE [Concomitant]
     Dosage: 150 MG, UNK
     Dates: start: 20031024, end: 20031024
  5. ISOFLURANE [Concomitant]
     Dosage: UNK
     Dates: start: 20031024, end: 20031024
  6. FENTANYL [Concomitant]
     Dosage: UNK
     Dates: start: 20031024, end: 20031024
  7. HEPARIN [Concomitant]
     Dosage: 10,000 UNITS
     Dates: start: 20031024, end: 20031024
  8. PROTAMINE SULFATE [Concomitant]
     Dosage: 650 MG, UNK
     Dates: start: 20031024, end: 20031024
  9. TRASYLOL [Suspect]
     Indication: MITRAL VALVE REPLACEMENT
     Dosage: 200 ML THEN INFUSION AT 50 ML/HR
     Route: 042
     Dates: start: 20031024
  10. VERSED [Concomitant]
  11. NITROGLYCERIN [Concomitant]
     Dosage: UNK
     Dates: start: 20031024
  12. MILRINONE [Concomitant]
  13. VANCOMYCIN [Concomitant]
     Dosage: 1 G, UNK
     Route: 042
     Dates: start: 20031024, end: 20031024
  14. TRASYLOL [Suspect]
     Indication: AORTIC VALVE REPLACEMENT

REACTIONS (11)
  - RENAL FAILURE [None]
  - RENAL INJURY [None]
  - INJURY [None]
  - RENAL IMPAIRMENT [None]
  - ANXIETY [None]
  - ANHEDONIA [None]
  - FEAR [None]
  - STRESS [None]
  - UNEVALUABLE EVENT [None]
  - PAIN [None]
  - EMOTIONAL DISTRESS [None]
